FAERS Safety Report 6733088-3 (Version None)
Quarter: 2010Q2

REPORT INFORMATION
  Report Type: 
  Country: None (occurrence: None)
  Receive Date: 20100518
  Receipt Date: 20100510
  Transmission Date: 20101027
  Serious: Yes (Other)
  Sender: FDA-Public Use
  Company Number: 2010SP017950

PATIENT
  Age: 16 Year
  Sex: Female

DRUGS (2)
  1. IMPLANON [Suspect]
     Indication: DRUG USE FOR UNKNOWN INDICATION
     Dates: start: 20091022
  2. LEVOTHYROXINE SODIUM [Concomitant]

REACTIONS (5)
  - OEDEMA PERIPHERAL [None]
  - SWELLING FACE [None]
  - TREATMENT NONCOMPLIANCE [None]
  - VOMITING [None]
  - WEIGHT INCREASED [None]
